FAERS Safety Report 9274658 (Version 1)
Quarter: 2013Q2

REPORT INFORMATION
  Report Type: Spontaneous
  Country: US (occurrence: None)
  Receive Date: 20130429
  Receipt Date: 20130429
  Transmission Date: 20140414
  Serious: Yes (Other)
  Sender: FDA-Public Use
  Company Number: A1020869A

PATIENT
  Sex: Female

DRUGS (4)
  1. GLUCOSE OXIDASE\LACTOFEROXIDASE\LYSOZYME HYDROCHLORIDE\SODIUM MONOFLUOROPHOSPHATE [Suspect]
  2. LACTOPEROXIDASE BOVINE\LYSOZYME HYDROCHLORIDE [Suspect]
  3. LACTOPEROXIDASE BOVINE\LYSOZYME HYDROCHLORIDE [Suspect]
  4. CHEWING GUM [Suspect]

REACTIONS (1)
  - Toxicity to various agents [None]
